FAERS Safety Report 4893453-6 (Version None)
Quarter: 2006Q1

REPORT INFORMATION
  Report Type: 
  Country: None (occurrence: None)
  Receive Date: 20060127
  Receipt Date: 20060120
  Transmission Date: 20060701
  Serious: Yes (Other)
  Sender: FDA-Public Use
  Company Number: PHEH2006US01271

PATIENT
  Age: 58 Year
  Sex: Male

DRUGS (1)
  1. ELIDEL [Suspect]
     Indication: RASH
     Dosage: UNK, QD
     Route: 061
     Dates: start: 20050517, end: 20051201

REACTIONS (3)
  - DRUG INEFFECTIVE [None]
  - MALIGNANT TUMOUR EXCISION [None]
  - SKIN CANCER [None]
